FAERS Safety Report 12156097 (Version 3)
Quarter: 2016Q2

REPORT INFORMATION
  Report Type: Spontaneous
  Country: DE (occurrence: DE)
  Receive Date: 20160307
  Receipt Date: 20160401
  Transmission Date: 20160815
  Serious: Yes (Other)
  Sender: FDA-Public Use
  Company Number: DE-ELI_LILLY_AND_COMPANY-DE201602008782

PATIENT
  Age: 38 Year
  Sex: Female

DRUGS (8)
  1. CORTISONE [Suspect]
     Active Substance: CORTISONE\HYDROCORTISONE
     Indication: PARAESTHESIA
     Dosage: UNK, UNKNOWN
     Route: 065
  2. ALCOHOL. [Concomitant]
     Active Substance: ALCOHOL
     Dosage: UNK, UNKNOWN
     Route: 065
  3. COCAINE [Concomitant]
     Active Substance: COCAINE
     Dosage: UNK, UNKNOWN
     Route: 065
  4. INUVAIR [Concomitant]
     Active Substance: BECLOMETHASONE DIPROPIONATE\FORMOTEROL FUMARATE
     Indication: ASTHMA
     Dosage: UNK, UNKNOWN
     Route: 065
  5. CORTISONE [Suspect]
     Active Substance: CORTISONE\HYDROCORTISONE
     Indication: NUCLEAR MAGNETIC RESONANCE IMAGING BRAIN ABNORMAL
  6. CYMBALTA [Suspect]
     Active Substance: DULOXETINE HYDROCHLORIDE
     Indication: POLYNEUROPATHY
     Dosage: UNK, UNKNOWN
     Route: 048
  7. LYRICA [Concomitant]
     Active Substance: PREGABALIN
     Dosage: UNK, UNKNOWN
  8. SALBUTAMOL [Concomitant]
     Active Substance: ALBUTEROL
     Indication: ASTHMA
     Dosage: UNK, UNKNOWN
     Route: 065

REACTIONS (9)
  - Fall [Unknown]
  - Confusional state [Recovered/Resolved]
  - Off label use [Unknown]
  - Paraesthesia [Not Recovered/Not Resolved]
  - Weight increased [Unknown]
  - Exposure to violent event [Unknown]
  - Nuclear magnetic resonance imaging brain abnormal [Not Recovered/Not Resolved]
  - Haematoma [Recovered/Resolved]
  - Amnesia [Recovered/Resolved]

NARRATIVE: CASE EVENT DATE: 2011
